FAERS Safety Report 7798950-1 (Version None)
Quarter: 2011Q4

REPORT INFORMATION
  Report Type: 
  Country: None (occurrence: None)
  Receive Date: 20111006
  Receipt Date: 20110928
  Transmission Date: 20120403
  Serious: Yes (Hospitalization)
  Sender: FDA-Public Use
  Company Number: US-US-EMD SERONO, INC.-7084804

PATIENT
  Sex: Female
  Weight: 73 kg

DRUGS (4)
  1. UNSPECIFIED MEDICATIONS [Concomitant]
  2. SULINDAC [Suspect]
     Indication: ARTHRITIS
     Dates: end: 20110901
  3. REBIF [Suspect]
     Indication: MULTIPLE SCLEROSIS
     Route: 058
     Dates: start: 20030617, end: 20110905
  4. METFORMIN HCL [Suspect]
     Indication: TYPE 2 DIABETES MELLITUS
     Dates: end: 20110901

REACTIONS (6)
  - WEIGHT DECREASED [None]
  - TRIGEMINAL NEURALGIA [None]
  - RENAL FAILURE [None]
  - DECREASED APPETITE [None]
  - ABDOMINAL DISCOMFORT [None]
  - VOMITING [None]
